FAERS Safety Report 9960148 (Version 1)
Quarter: 2014Q1

REPORT INFORMATION
  Report Type: Spontaneous
  Country: US (occurrence: None)
  Receive Date: 20140228
  Receipt Date: 20140228
  Transmission Date: 20141002
  Serious: Yes (Hospitalization)
  Sender: FDA-Public Use
  Company Number: None

PATIENT
  Age: 60 Year
  Sex: Female
  Weight: 53.7 kg

DRUGS (13)
  1. ABRAXANE [Suspect]
     Indication: HEAD AND NECK CANCER
     Dates: start: 20140224
  2. CARBOPLATIN [Suspect]
     Indication: HEAD AND NECK CANCER
     Dates: start: 20140224
  3. ACETYLCYSTEINE (MUCOMYST) [Concomitant]
  4. ALBUTEROL [Concomitant]
  5. ALBUTEROL-IPRATROPIUM (DUONEB) [Concomitant]
  6. BACLOFEN (LIORESAL) [Concomitant]
  7. DEXTROSE SYRINGE [Concomitant]
  8. DOCUSATE (COLACE) [Concomitant]
  9. INSULIN ASPART (NOVOLOG) INJECTION [Concomitant]
  10. MAGIC MOUTHWASH (LIDOCAINE/DIPHENHYDRAMINE/MAALOX) [Concomitant]
  11. MIRTAZAPINE (REMERON) [Concomitant]
  12. MORPHINE ORAL SOLUTION [Concomitant]
  13. SODIUM CHLORIDE [Concomitant]

REACTIONS (3)
  - Tongue haemorrhage [None]
  - Device dislocation [None]
  - Disease recurrence [None]
